FAERS Safety Report 7814816-2 (Version None)
Quarter: 2011Q4

REPORT INFORMATION
  Report Type: 
  Country: None (occurrence: None)
  Receive Date: 20111014
  Receipt Date: 20110929
  Transmission Date: 20120403
  Serious: Yes (Disabling, Congenital Anomaly, Other)
  Sender: FDA-Public Use
  Company Number: VE-ROCHE-1004216

PATIENT

DRUGS (1)
  1. ISOTRETINOIN [Suspect]
     Indication: ACNE

REACTIONS (4)
  - CONGENITAL ANOMALY [None]
  - HYPERTROPHIC CARDIOMYOPATHY [None]
  - GROWTH RETARDATION [None]
  - PSYCHOMOTOR RETARDATION [None]
